FAERS Safety Report 20623792 (Version 1)
Quarter: 2022Q1

REPORT INFORMATION
  Report Type: Spontaneous
  Country: US (occurrence: US)
  Receive Date: 20220322
  Receipt Date: 20220322
  Transmission Date: 20220424
  Serious: No
  Sender: FDA-Public Use
  Company Number: US-009507513-2203USA000687

PATIENT
  Age: 62 Year
  Sex: Male

DRUGS (1)
  1. INVANZ [Suspect]
     Active Substance: ERTAPENEM SODIUM
     Indication: Osteomyelitis
     Dosage: UNK, FOR 96 DAYS

REACTIONS (1)
  - Product use in unapproved indication [Unknown]
